FAERS Safety Report 15868110 (Version 5)
Quarter: 2020Q3

REPORT INFORMATION
  Report Type: Spontaneous
  Country: DE (occurrence: DE)
  Receive Date: 20190125
  Receipt Date: 20200707
  Transmission Date: 20201102
  Serious: Yes (Hospitalization, Other)
  Sender: FDA-Public Use
  Company Number: DE-PFIZER INC-2019032616

PATIENT
  Age: 60 Year
  Sex: Male

DRUGS (7)
  1. ACETYLSALICYLIC ACID [Concomitant]
     Active Substance: ASPIRIN
     Dosage: UNK
     Route: 048
  2. SPIRONOLACTONE. [Concomitant]
     Active Substance: SPIRONOLACTONE
     Dosage: UNK
     Route: 048
  3. ATORVASTATIN [Concomitant]
     Active Substance: ATORVASTATIN
     Dosage: UNK
     Route: 048
  4. OPIPRAMOL [Concomitant]
     Active Substance: OPIPRAMOL
     Dosage: UNK
     Route: 048
  5. PANTOPRAZOLE [Suspect]
     Active Substance: PANTOPRAZOLE
     Dosage: 40 MG, 1X/DAY
     Route: 048
  6. FERRO SANOL [Concomitant]
     Active Substance: FERROUS GLYCINE SULFATE
     Dosage: UNK
     Route: 048
  7. RAMIPRIL. [Concomitant]
     Active Substance: RAMIPRIL
     Dosage: UNK
     Route: 048

REACTIONS (4)
  - Hypocalcaemia [Recovered/Resolved]
  - Hypoparathyroidism secondary [Recovered/Resolved]
  - Hypomagnesaemia [Recovered/Resolved]
  - Posterior reversible encephalopathy syndrome [Recovered/Resolved]
